FAERS Safety Report 25796783 (Version 1)
Quarter: 2025Q3

REPORT INFORMATION
  Report Type: Spontaneous
  Country: US (occurrence: US)
  Receive Date: 20250912
  Receipt Date: 20250912
  Transmission Date: 20251020
  Serious: Yes (Hospitalization)
  Sender: ANI
  Company Number: US-ANIPHARMA-2025-US-019356

PATIENT
  Age: 50 Year
  Sex: Female

DRUGS (15)
  1. CORTICOTROPIN [Suspect]
     Active Substance: CORTICOTROPIN
     Indication: Rheumatoid arthritis
     Route: 058
  2. HYDROCHLOROTHIAZIDE [Concomitant]
     Active Substance: HYDROCHLOROTHIAZIDE
  3. LORATADINE [Concomitant]
     Active Substance: LORATADINE
  4. ALBUTEROL SULFATE [Concomitant]
     Active Substance: ALBUTEROL SULFATE
  5. IPRATROPIUM BROMIDE [Concomitant]
     Active Substance: IPRATROPIUM BROMIDE
  6. PROLASTIN [Concomitant]
     Active Substance: .ALPHA.1-PROTEINASE INHIBITOR HUMAN
  7. TRELEGY ELLIPTA [Concomitant]
     Active Substance: FLUTICASONE FUROATE\UMECLIDINIUM BROMIDE\VILANTEROL TRIFENATATE
  8. ZINC [Concomitant]
     Active Substance: ZINC
  9. ENBREL [Concomitant]
     Active Substance: ETANERCEPT
  10. VITAMIN C [Concomitant]
     Active Substance: ASCORBIC ACID
  11. D3 + K2 DOTS [Concomitant]
  12. GNP POTASSIUM [Concomitant]
  13. PREDNISONE [Concomitant]
     Active Substance: PREDNISONE
  14. LEFLUNOMIDE [Concomitant]
     Active Substance: LEFLUNOMIDE
  15. AMLODIPINE BESYLATE [Concomitant]
     Active Substance: AMLODIPINE BESYLATE

REACTIONS (8)
  - Product dose omission issue [Unknown]
  - Eye pain [Unknown]
  - Vision blurred [Unknown]
  - Influenza [Not Recovered/Not Resolved]
  - Nasal congestion [Not Recovered/Not Resolved]
  - Fatigue [Not Recovered/Not Resolved]
  - Respiratory syncytial virus infection [Unknown]
  - Human metapneumovirus test positive [Unknown]

NARRATIVE: CASE EVENT DATE: 20250316
